FAERS Safety Report 7323949-9 (Version None)
Quarter: 2011Q1

REPORT INFORMATION
  Report Type: 
  Country: None (occurrence: None)
  Receive Date: 20110301
  Receipt Date: 20110222
  Transmission Date: 20110831
  Serious: Yes (Death)
  Sender: FDA-Public Use
  Company Number: B0700821A

PATIENT
  Age: 73 Year
  Sex: Male

DRUGS (4)
  1. WARFARIN [Concomitant]
     Route: 048
  2. ALDACTONE [Concomitant]
     Route: 048
  3. REVOLADE [Suspect]
     Indication: IDIOPATHIC THROMBOCYTOPENIC PURPURA
     Dosage: 12.5MG PER DAY
     Route: 048
     Dates: start: 20101210
  4. FUROSEMIDE [Concomitant]

REACTIONS (1)
  - AORTIC DISSECTION [None]
